FAERS Safety Report 7510521-0 (Version None)
Quarter: 2011Q2

REPORT INFORMATION
  Report Type: 
  Country: None (occurrence: None)
  Receive Date: 20110530
  Receipt Date: 20110518
  Transmission Date: 20111010
  Serious: Yes (Other)
  Sender: FDA-Public Use
  Company Number: AR-AMGEN-ARGSP2011024304

PATIENT
  Age: 57 Year

DRUGS (5)
  1. ENBREL [Suspect]
     Indication: RHEUMATOID ARTHRITIS
     Dosage: 25 MG, 2X/WEEK
     Route: 058
     Dates: start: 20070528, end: 20100316
  2. METHOTREXATE [Concomitant]
     Dosage: 10 MG, WEEKLY
     Route: 048
     Dates: end: 20100318
  3. DEFLAZACORT [Concomitant]
     Dosage: UNK
  4. ENALAPRIL MALEATE [Concomitant]
     Dosage: 5 MG, 1X/DAY
  5. FOLIC ACID [Concomitant]
     Dosage: 5 MG, WEEKLY

REACTIONS (4)
  - RHEUMATOID ARTHRITIS [None]
  - SUBCUTANEOUS NODULE [None]
  - DEPRESSION [None]
  - MENINGIOMA [None]
